FAERS Safety Report 4649152-9 (Version None)
Quarter: 2005Q2

REPORT INFORMATION
  Report Type: 
  Country: None (occurrence: None)
  Receive Date: 20050331
  Receipt Date: 20041227
  Transmission Date: 20051028
  Serious: No
  Sender: FDA-Public Use
  Company Number: 04P-163-0284626-00

PATIENT
  Age: 60 Year
  Sex: Female
  Weight: 90.7194 kg

DRUGS (10)
  1. HUMIRA [Suspect]
     Indication: RHEUMATOID ARTHRITIS
     Dosage: 40 MG, 1 IN 2 WK, SUBCUTANEOUS
     Route: 058
     Dates: start: 20040601
  2. METHOTREXATE SODIUM [Concomitant]
  3. VICODIN [Concomitant]
  4. PRAZOSIN HYDROCHLORIDE [Concomitant]
  5. PAROXETINE HYDROCHLORIDE [Concomitant]
  6. OMEPRAZOLE [Concomitant]
  7. PROPRANOLOL HYDROCHLORIDE [Concomitant]
  8. IMITREX [Concomitant]
  9. MERAPEX [Concomitant]
  10. ESTRODIAL [Concomitant]

REACTIONS (1)
  - INJECTION SITE PAIN [None]
